FAERS Safety Report 21529191 (Version 1)
Quarter: 2022Q4

REPORT INFORMATION
  Report Type: Spontaneous
  Country: JP (occurrence: JP)
  Receive Date: 20221031
  Receipt Date: 20221031
  Transmission Date: 20230113
  Serious: Yes (Other)
  Sender: FDA-Public Use
  Company Number: JP-BAYER-2022A150973

PATIENT
  Age: 75 Year
  Sex: Male

DRUGS (1)
  1. EYLEA [Suspect]
     Active Substance: AFLIBERCEPT
     Indication: Diabetic retinal oedema
     Dosage: LEFT EYE 0.05 ML ONCE, INITIAL INJECTION, SOLUTION FOR INJECTION, 40MG/ML
     Route: 031
     Dates: start: 20221021, end: 20221021

REACTIONS (5)
  - Visual impairment [Unknown]
  - Endophthalmitis [Unknown]
  - Anterior chamber inflammation [Unknown]
  - Lenticular opacities [Unknown]
  - Corneal deposits [Unknown]

NARRATIVE: CASE EVENT DATE: 20221028
